FAERS Safety Report 6670479-3 (Version None)
Quarter: 2010Q2

REPORT INFORMATION
  Report Type: 
  Country: None (occurrence: None)
  Receive Date: 20100407
  Receipt Date: 20100329
  Transmission Date: 20101027
  Serious: No
  Sender: FDA-Public Use
  Company Number: US-BIOGENIDEC-2010BI010727

PATIENT
  Age: 51 Year
  Sex: Female

DRUGS (1)
  1. TYSABRI [Suspect]
     Indication: MULTIPLE SCLEROSIS
     Route: 042
     Dates: start: 20070730

REACTIONS (5)
  - ASTHENIA [None]
  - ASTHENOPIA [None]
  - CENTRAL VENOUS CATHETERISATION [None]
  - INFUSION SITE PAIN [None]
  - SPEECH DISORDER [None]
